FAERS Safety Report 25839319 (Version 1)
Quarter: 2025Q3

REPORT INFORMATION
  Report Type: Spontaneous
  Country: US (occurrence: US)
  Receive Date: 20250924
  Receipt Date: 20250924
  Transmission Date: 20251021
  Serious: No
  Sender: CMP PHARMA
  Company Number: US-CMP PHARMA-CMP202500076

PATIENT

DRUGS (1)
  1. ATORVALIQ [Suspect]
     Active Substance: ATORVASTATIN CALCIUM TRIHYDRATE
     Indication: Blood cholesterol increased
     Route: 065
     Dates: start: 20250827

REACTIONS (2)
  - Product prescribing issue [Unknown]
  - Product quality issue [Unknown]
